FAERS Safety Report 7381647-X (Version None)
Quarter: 2011Q1

REPORT INFORMATION
  Report Type: 
  Country: None (occurrence: None)
  Receive Date: 20110329
  Receipt Date: 20101011
  Transmission Date: 20110831
  Serious: Yes (Other)
  Sender: FDA-Public Use
  Company Number: US-BAYER-201018962NA

PATIENT
  Sex: Female
  Weight: 86.621 kg

DRUGS (6)
  1. YASMIN [Suspect]
     Indication: POLYCYSTIC OVARIES
  2. OCELLA [Suspect]
     Indication: AMENORRHOEA
     Dosage: UNK
     Dates: start: 20080703, end: 20090119
  3. YASMIN [Suspect]
     Indication: AMENORRHOEA
     Dosage: UNK
     Route: 048
     Dates: start: 20080317, end: 20080609
  4. OCELLA [Suspect]
     Indication: POLYCYSTIC OVARIES
  5. PRILOSEC [Concomitant]
     Dosage: 20 MG, UNK
     Dates: start: 20081023
  6. METFORMIN HCL [Concomitant]
     Indication: WEIGHT DECREASED
     Dosage: 500 MG, BID
     Dates: start: 20070101

REACTIONS (4)
  - GALLBLADDER NON-FUNCTIONING [None]
  - CHOLECYSTITIS CHRONIC [None]
  - ABDOMINAL PAIN UPPER [None]
  - BILIARY DYSKINESIA [None]
